FAERS Safety Report 6069163-9 (Version None)
Quarter: 2009Q1

REPORT INFORMATION
  Report Type: 
  Country: None (occurrence: None)
  Receive Date: 20090206
  Receipt Date: 20090202
  Transmission Date: 20090719
  Serious: Yes (Other)
  Sender: FDA-Public Use
  Company Number: AU-BAXTER-2008BH014278

PATIENT
  Age: 6 Year
  Sex: Male

DRUGS (1)
  1. RECOMBINATE [Suspect]
     Indication: DRUG USE FOR UNKNOWN INDICATION
     Route: 042

REACTIONS (4)
  - ABDOMINAL PAIN [None]
  - BLOOD CULTURE POSITIVE [None]
  - CHEST PAIN [None]
  - DYSPNOEA [None]
